FAERS Safety Report 8887446 (Version 1)
Quarter: 2012Q4

REPORT INFORMATION
  Report Type: Spontaneous
  Country: US (occurrence: None)
  Receive Date: 20121101
  Receipt Date: 20121101
  Transmission Date: 20130627
  Serious: Yes (Life-Threatening)
  Sender: FDA-Public Use
  Company Number: None

PATIENT
  Sex: Female
  Weight: 62.6 kg

DRUGS (1)
  1. PRILOSEC DELAYED-RELEASE CAPSULES [Suspect]
     Indication: ULCER
     Dosage: 20 mg. 2 xday
     Dates: start: 201209, end: 20120922

REACTIONS (14)
  - Unevaluable event [None]
  - Chills [None]
  - Peripheral coldness [None]
  - Bone pain [None]
  - Arthralgia [None]
  - Headache [None]
  - Oropharyngeal pain [None]
  - Chest discomfort [None]
  - Abdominal pain upper [None]
  - Asthenia [None]
  - Fatigue [None]
  - Gait disturbance [None]
  - Visual impairment [None]
  - Heart rate decreased [None]
